FAERS Safety Report 8407034-0 (Version None)
Quarter: 2012Q2

REPORT INFORMATION
  Report Type: 
  Country: None (occurrence: None)
  Receive Date: 20120604
  Receipt Date: 20120523
  Transmission Date: 20120825
  Serious: Yes (Hospitalization)
  Sender: FDA-Public Use
  Company Number: US-SANOFI-AVENTIS-2012SA037279

PATIENT
  Age: 85 Year
  Sex: Male
  Weight: 90.2 kg

DRUGS (15)
  1. DEXAMETHASONE [Concomitant]
     Indication: PROSTATE CANCER
     Route: 048
     Dates: start: 20120515
  2. LOVAZA [Concomitant]
  3. MULTI-VITAMINS [Concomitant]
  4. PLAVIX [Concomitant]
  5. ASPIRIN [Concomitant]
  6. PREDNISONE [Concomitant]
     Indication: PROSTATE CANCER
     Route: 048
  7. VITAMIN D [Concomitant]
  8. CARVEDILOL [Concomitant]
  9. CRESTOR [Concomitant]
  10. ISOSORBIDE MONONITRATE [Concomitant]
  11. DOCETAXEL [Suspect]
     Indication: PROSTATE CANCER
     Route: 042
     Dates: start: 20120516, end: 20120516
  12. COENZYME Q10 [Concomitant]
  13. BLINDED THERAPY [Suspect]
     Indication: PROSTATE CANCER
     Dates: start: 20120516
  14. ALL OTHER THERAPEUTIC PRODUCTS [Concomitant]
  15. FUROSEMIDE [Concomitant]

REACTIONS (1)
  - ACUTE CORONARY SYNDROME [None]
